FAERS Safety Report 11505725 (Version 1)
Quarter: 2015Q3

REPORT INFORMATION
  Report Type: Spontaneous
  Country: US (occurrence: US)
  Receive Date: 20150915
  Receipt Date: 20150915
  Transmission Date: 20151125
  Serious: No
  Sender: FDA-Public Use
  Company Number: US-ROCHE-782438

PATIENT
  Sex: Male

DRUGS (2)
  1. RIBASPHERE [Suspect]
     Active Substance: RIBAVIRIN
     Indication: HEPATITIS C
     Route: 065
  2. PEGASYS [Suspect]
     Active Substance: PEGINTERFERON ALFA-2A
     Indication: HEPATITIS C
     Route: 065

REACTIONS (7)
  - Myalgia [Unknown]
  - Crying [Unknown]
  - Nausea [Unknown]
  - Fatigue [Unknown]
  - Dyskinesia [Unknown]
  - Decreased appetite [Unknown]
  - Hyperkinesia [Unknown]
